FAERS Safety Report 16910847 (Version 1)
Quarter: 2019Q4

REPORT INFORMATION
  Report Type: Spontaneous
  Country: US (occurrence: US)
  Receive Date: 20191012
  Receipt Date: 20191012
  Transmission Date: 20200122
  Serious: No
  Sender: FDA-Public Use
  Company Number: US-BION-007542

PATIENT
  Sex: Female

DRUGS (1)
  1. PROGESTERONE 200MG CAPSULE BION PHARMA [Suspect]
     Active Substance: PROGESTERONE
     Indication: PROGESTERONE DECREASED
     Dosage: STRENGTH: 200 MG?DOSE: 400 MG (200 MG X 2) ONCE AT BED TIME FOR FIRST 12 DAYS OF MENSTRUAL CYCLE

REACTIONS (4)
  - Back pain [Unknown]
  - Abdominal distension [Unknown]
  - Menorrhagia [Unknown]
  - Product use in unapproved indication [Not Recovered/Not Resolved]
